FAERS Safety Report 5022465-7 (Version None)
Quarter: 2006Q2

REPORT INFORMATION
  Report Type: 
  Country: None (occurrence: None)
  Receive Date: 20060609
  Receipt Date: 20060601
  Transmission Date: 20061013
  Serious: Yes (Death)
  Sender: FDA-Public Use
  Company Number: DE-ROCHE-450266

PATIENT
  Age: 59 Year
  Sex: Female

DRUGS (1)
  1. XELODA [Suspect]
     Route: 048

REACTIONS (3)
  - APLASIA [None]
  - GASTROINTESTINAL NECROSIS [None]
  - MUCOSAL INFLAMMATION [None]
